FAERS Safety Report 10728054 (Version 3)
Quarter: 2015Q1

REPORT INFORMATION
  Report Type: Spontaneous
  Country: BR (occurrence: BR)
  Receive Date: 20150121
  Receipt Date: 20150130
  Transmission Date: 20150721
  Serious: Yes (Other)
  Sender: FDA-Public Use
  Company Number: BR-PFIZER INC-2015021159

PATIENT
  Sex: Male

DRUGS (2)
  1. SILDENAFIL CITRATE. [Suspect]
     Active Substance: SILDENAFIL CITRATE
     Dosage: UNK
  2. SILDENAFIL CITRATE. [Suspect]
     Active Substance: SILDENAFIL CITRATE
     Dosage: UNK

REACTIONS (3)
  - Angiopathy [Unknown]
  - Prostatic disorder [Unknown]
  - Drug ineffective [Unknown]
